FAERS Safety Report 9803277 (Version 4)
Quarter: 2014Q2

REPORT INFORMATION
  Report Type: Spontaneous
  Country: US (occurrence: US)
  Receive Date: 20140108
  Receipt Date: 20140407
  Transmission Date: 20141212
  Serious: Yes (Hospitalization, Other)
  Sender: FDA-Public Use
  Company Number: US-ASTELLAS-2014US000083

PATIENT
  Age: 93 Year
  Sex: Male

DRUGS (1)
  1. XTANDI [Suspect]
     Indication: PROSTATE CANCER
     Dosage: 160 MG, UID/QD
     Route: 048
     Dates: start: 20130530

REACTIONS (6)
  - Wrong technique in drug usage process [Unknown]
  - Investigation [Unknown]
  - Bedridden [Unknown]
  - General physical health deterioration [Unknown]
  - Asthenia [Unknown]
  - Dysphagia [Unknown]
